FAERS Safety Report 15684690 (Version 1)
Quarter: 2018Q4

REPORT INFORMATION
  Report Type: Spontaneous
  Country: CA (occurrence: CA)
  Receive Date: 20181204
  Receipt Date: 20181204
  Transmission Date: 20190205
  Serious: Yes (Death, Other)
  Sender: FDA-Public Use
  Company Number: CA-PFIZER INC-2016579859

PATIENT
  Age: 69 Year
  Sex: Female

DRUGS (4)
  1. XELJANZ [Suspect]
     Active Substance: TOFACITINIB CITRATE
     Indication: RHEUMATOID ARTHRITIS
     Dosage: 5 MG, TWICE A DAY
     Route: 048
     Dates: start: 20150918, end: 20171218
  2. XELJANZ [Suspect]
     Active Substance: TOFACITINIB CITRATE
     Dosage: 5 MG, TWICE A DAY
     Route: 048
     Dates: end: 2018
  3. ESBRIET [Concomitant]
     Active Substance: PIRFENIDONE
  4. XELJANZ [Suspect]
     Active Substance: TOFACITINIB CITRATE
     Dosage: 5 MG, TWICE A DAY
     Route: 048
     Dates: start: 2018

REACTIONS (7)
  - Death [Fatal]
  - Drug effect incomplete [Unknown]
  - Infection [Unknown]
  - Cough [Not Recovered/Not Resolved]
  - Lung disorder [Unknown]
  - Lower respiratory tract infection [Unknown]
  - Condition aggravated [Not Recovered/Not Resolved]

NARRATIVE: CASE EVENT DATE: 20161210
